FAERS Safety Report 24787885 (Version 1)
Quarter: 2024Q4

REPORT INFORMATION
  Report Type: Spontaneous
  Country: IT (occurrence: IT)
  Receive Date: 20241230
  Receipt Date: 20241230
  Transmission Date: 20250114
  Serious: No
  Sender: ALKEM
  Company Number: IT-ALKEM LABORATORIES LIMITED-IT-ALKEM-2024-02579

PATIENT
  Age: 36 Year
  Sex: Female

DRUGS (1)
  1. TACROLIMUS [Suspect]
     Active Substance: TACROLIMUS
     Indication: Lichen sclerosus
     Dosage: UNK
     Route: 061

REACTIONS (1)
  - Drug resistance [Unknown]
